FAERS Safety Report 16142197 (Version 1)
Quarter: 2019Q2

REPORT INFORMATION
  Report Type: Spontaneous
  Country: US (occurrence: US)
  Receive Date: 20190401
  Receipt Date: 20190401
  Transmission Date: 20190711
  Serious: No
  Sender: FDA-Public Use
  Company Number: US-SA-2019SA087216

PATIENT
  Age: 74 Year
  Sex: Female

DRUGS (10)
  1. PRALUENT [Suspect]
     Active Substance: ALIROCUMAB
     Indication: HYPERLIPIDAEMIA
     Dosage: 75 MG, QOW
     Route: 058
     Dates: start: 20190306
  2. POTASSIUM [Concomitant]
     Active Substance: POTASSIUM
  3. PLAVIX [Concomitant]
     Active Substance: CLOPIDOGREL BISULFATE
  4. FUROSEMIDE. [Concomitant]
     Active Substance: FUROSEMIDE
  5. NORCO [Concomitant]
     Active Substance: ACETAMINOPHEN\HYDROCODONE BITARTRATE
  6. HYZAAR [Concomitant]
     Active Substance: HYDROCHLOROTHIAZIDE\LOSARTAN POTASSIUM
  7. COQ 10 [Concomitant]
     Active Substance: UBIDECARENONE
  8. NITROGLYCERIN. [Concomitant]
     Active Substance: NITROGLYCERIN
  9. METOPROLOL. [Concomitant]
     Active Substance: METOPROLOL
  10. MORPHINE [Concomitant]
     Active Substance: MORPHINE

REACTIONS (1)
  - Ageusia [Unknown]

NARRATIVE: CASE EVENT DATE: 20190325
